FAERS Safety Report 7611728-4 (Version None)
Quarter: 2011Q3

REPORT INFORMATION
  Report Type: 
  Country: None (occurrence: None)
  Receive Date: 20110715
  Receipt Date: 20110707
  Transmission Date: 20111222
  Serious: Yes (Other)
  Sender: FDA-Public Use
  Company Number: FR-SANOFI-AVENTIS-2011SA043048

PATIENT
  Age: 66 Year
  Sex: Female

DRUGS (7)
  1. FLUOROURACIL [Suspect]
     Route: 042
  2. LEUCOVORIN CALCIUM [Suspect]
     Route: 042
  3. LEUCOVORIN CALCIUM [Suspect]
     Route: 042
     Dates: start: 20110401, end: 20110401
  4. ELOXATIN [Suspect]
     Route: 042
     Dates: start: 20110401, end: 20110401
  5. BETA BLOCKING AGENTS [Concomitant]
  6. FLUOROURACIL [Suspect]
     Route: 042
     Dates: start: 20110401, end: 20110401
  7. ELOXATIN [Suspect]
     Route: 042

REACTIONS (3)
  - ELECTROCARDIOGRAM ABNORMAL [None]
  - PALPITATIONS [None]
  - CHEST PAIN [None]
